FAERS Safety Report 5345978-7 (Version None)
Quarter: 2007Q2

REPORT INFORMATION
  Report Type: 
  Country: None (occurrence: None)
  Receive Date: 20070426
  Receipt Date: 20061013
  Transmission Date: 20071010
  Serious: Yes (Other)
  Sender: FDA-Public Use
  Company Number: US-JNJFOC-20061003791

PATIENT
  Sex: Female

DRUGS (1)
  1. RAZADYNE (GALANTAMINE HBR) PROLONGED-RELEASE CAPSULE [Suspect]
     Indication: DEMENTIA ALZHEIMER'S TYPE
     Dosage: SEE IMAGE
     Route: 048

REACTIONS (1)
  - HALLUCINATION [None]
